FAERS Safety Report 21385985 (Version 1)
Quarter: 2022Q3

REPORT INFORMATION
  Report Type: Spontaneous
  Country: CN (occurrence: CN)
  Receive Date: 20220928
  Receipt Date: 20220928
  Transmission Date: 20221026
  Serious: Yes (Other)
  Sender: FDA-Public Use
  Company Number: CN-PFIZER INC-PV202200070090

PATIENT
  Age: 62 Year
  Sex: Male
  Weight: 76 kg

DRUGS (3)
  1. AMLODIPINE BESYLATE [Suspect]
     Active Substance: AMLODIPINE BESYLATE
     Indication: Hypertension
     Dosage: 5 MG, 1X/DAY
     Route: 048
     Dates: start: 20220817, end: 20220824
  2. IRBESARTAN AND HYDROCHLOROTHIAZIDE [Suspect]
     Active Substance: HYDROCHLOROTHIAZIDE\IRBESARTAN
     Indication: Hypertension
     Dosage: 150 MG, 1X/DAY
     Route: 048
     Dates: start: 20220817, end: 20220824
  3. BISOPROLOL FUMARATE [Concomitant]
     Active Substance: BISOPROLOL FUMARATE
     Indication: Hypertension
     Dosage: 5 MG, 1X/DAY
     Route: 048
     Dates: start: 20220817, end: 20220824

REACTIONS (3)
  - Tinnitus [Recovering/Resolving]
  - Deafness [Unknown]
  - Pollakiuria [Recovering/Resolving]

NARRATIVE: CASE EVENT DATE: 20220820
